FAERS Safety Report 18387249 (Version 1)
Quarter: 2020Q4

REPORT INFORMATION
  Report Type: Spontaneous
  Country: HU (occurrence: HU)
  Receive Date: 20201015
  Receipt Date: 20201015
  Transmission Date: 20210114
  Serious: Yes (Death)
  Sender: FDA-Public Use
  Company Number: NVSC2020HU276027

PATIENT
  Age: 36 Year
  Sex: Female

DRUGS (6)
  1. TECENTRIQ [Suspect]
     Active Substance: ATEZOLIZUMAB
     Indication: NON-SMALL CELL LUNG CANCER METASTATIC
     Dosage: 1200 MG, TIW(ON 19 MAY 2020, 6 CYCLES, COMBINATION THERAPY WITH TECENTRIQ , AVASTIN , PACLITAXEL/CAR
     Route: 041
     Dates: start: 20200130, end: 20200519
  2. TECENTRIQ [Suspect]
     Active Substance: ATEZOLIZUMAB
     Dosage: 1200 MG, TIW(ON 19/MAY/2020, 2 CYCLES OF THE AVASTIN ,TECENTRIQ MAINTENANCE THERAPY)
     Route: 041
     Dates: end: 20200519
  3. PACLITAXEL. [Suspect]
     Active Substance: PACLITAXEL
     Indication: NON-SMALL CELL LUNG CANCER METASTATIC
     Dosage: 200 MG/M2
     Route: 065
     Dates: start: 20191212, end: 20200519
  4. AVASTIN [Suspect]
     Active Substance: BEVACIZUMAB
     Dosage: 7.5 MG/KG, TIW(INFUSION, SOLUTION, 2 CYCLES OF THE AVASTIN ,TECENTRIQ MAINTENANCE THERAPY)
     Route: 065
     Dates: end: 20200519
  5. CARBOPLATIN. [Suspect]
     Active Substance: CARBOPLATIN
     Indication: NON-SMALL CELL LUNG CANCER METASTATIC
     Dosage: UNK(AUC 6)
     Route: 065
     Dates: start: 20191212
  6. AVASTIN [Suspect]
     Active Substance: BEVACIZUMAB
     Indication: NON-SMALL CELL LUNG CANCER METASTATIC
     Dosage: 7.5 MG/KG, TIW(6 CYCLES, COMBINATION THERAPY WITH TECENTRIQ , AVASTIN ,PACLITAXEL/CARBOPLATIN)
     Route: 065
     Dates: start: 20191212, end: 20200519

REACTIONS (3)
  - Mediastinum neoplasm [Fatal]
  - Pleural effusion [Fatal]
  - Metastases to liver [Fatal]

NARRATIVE: CASE EVENT DATE: 20200609
